FAERS Safety Report 17089489 (Version 1)
Quarter: 2019Q4

REPORT INFORMATION
  Report Type: Spontaneous
  Country: US (occurrence: US)
  Receive Date: 20191128
  Receipt Date: 20191128
  Transmission Date: 20200122
  Serious: Yes (Hospitalization, Other)
  Sender: FDA-Public Use
  Company Number: US-TEVA-2019-US-1142789

PATIENT
  Sex: Female

DRUGS (3)
  1. HYDROMORPHONE [Suspect]
     Active Substance: HYDROMORPHONE
     Indication: DRUG ABUSE
     Route: 042
  2. HYDROMORPHONE [Suspect]
     Active Substance: HYDROMORPHONE
     Indication: INTENTIONAL PRODUCT MISUSE
  3. HYDROMORPHONE [Suspect]
     Active Substance: HYDROMORPHONE
     Indication: PAIN

REACTIONS (13)
  - Reaction to excipient [Unknown]
  - Intentional product use issue [Unknown]
  - Drug abuse [Unknown]
  - Glomerulonephritis [Unknown]
  - Epistaxis [Unknown]
  - Glomerulonephritis rapidly progressive [Unknown]
  - Oedema peripheral [Unknown]
  - Cholangitis sclerosing [Unknown]
  - Crohn^s disease [Unknown]
  - Acute kidney injury [Unknown]
  - Vasculitis necrotising [Unknown]
  - Cutaneous vasculitis [Unknown]
  - Intentional product misuse [Unknown]
